FAERS Safety Report 26155481 (Version 1)
Quarter: 2025Q4

REPORT INFORMATION
  Report Type: Spontaneous
  Country: CN (occurrence: CN)
  Receive Date: 20251215
  Receipt Date: 20251215
  Transmission Date: 20260118
  Serious: Yes (Hospitalization, Disabling, Other)
  Sender: ALKEM
  Company Number: None

PATIENT
  Age: 59 Year
  Sex: Male

DRUGS (7)
  1. TACROLIMUS [Suspect]
     Active Substance: TACROLIMUS
     Indication: Viral corneal ulcer
     Dosage: UNK, QD, EYE DROPS
     Route: 061
  2. CYCLOSPORINE [Suspect]
     Active Substance: CYCLOSPORINE
     Indication: Iridocyclitis
     Dosage: 100 MILLIGRAM, BID
     Route: 065
  3. PREDNISOLONE ACETATE [Suspect]
     Active Substance: PREDNISOLONE ACETATE
     Indication: Viral corneal ulcer
     Dosage: UNK, BID
     Route: 061
  4. PREDNISOLONE ACETATE [Suspect]
     Active Substance: PREDNISOLONE ACETATE
     Dosage: UNK, QD (RESTARTED DOSE)
     Route: 061
  5. PREDNISONE [Suspect]
     Active Substance: PREDNISONE
     Indication: Viral corneal ulcer
     Dosage: UNK
     Route: 061
  6. PREDNISONE [Suspect]
     Active Substance: PREDNISONE
     Indication: Iridocyclitis
     Dosage: 40 MILLIGRAM, QD
     Route: 048
  7. GANCICLOVIR [Concomitant]
     Active Substance: GANCICLOVIR
     Indication: Viral corneal ulcer
     Dosage: UNK, QD
     Route: 061

REACTIONS (4)
  - Blindness [Recovered/Resolved]
  - Post transplant lymphoproliferative disorder [Recovered/Resolved]
  - Epstein-Barr virus infection [Recovered/Resolved]
  - Eye infection viral [Recovered/Resolved]
